FAERS Safety Report 9595339 (Version 1)
Quarter: 2013Q3

REPORT INFORMATION
  Report Type: Spontaneous
  Country: US (occurrence: None)
  Receive Date: 20130927
  Receipt Date: 20130927
  Transmission Date: 20140515
  Serious: Yes (Other)
  Sender: FDA-Public Use
  Company Number: CABO-13002828

PATIENT
  Age: 44 Year
  Sex: Male

DRUGS (14)
  1. COMETRIQ [Suspect]
     Indication: THYROID CANCER
     Dosage: 140 MG, QD, ORAL
     Route: 048
     Dates: start: 20130309, end: 20130509
  2. COMETRIQ [Suspect]
     Indication: BRAIN NEOPLASM MALIGNANT
     Dosage: 140 MG, QD, ORAL
     Route: 048
     Dates: start: 20130309, end: 20130509
  3. METFORMIN (METFORMIN HYDROCHLORIDE) [Concomitant]
  4. ATENOLOL (ATENOLOL) [Concomitant]
  5. COLACE [Concomitant]
  6. ALLOPURINOL (ALLOPURINOL) [Concomitant]
  7. MAGNESIUM (MAGNESIUM OXIDE) [Concomitant]
  8. MORPHINE (MORPHINE HYDROCHLORIDE) [Concomitant]
  9. MIRTAZAPINE (MIRTAZAPINE) [Concomitant]
  10. ISOSORBIDE MONONITRATE (ISOSORBIDE MONONITRATE)? [Concomitant]
  11. ZOFRAN (ONDANSETRON HYDROCHLORIDE) [Concomitant]
  12. COMPAZINE (PROCHLORPERAZINE MALEATE) [Concomitant]
  13. SENNA (SENNA ALEXANDRINA) [Concomitant]
  14. VITAMIN D (COLECACIFEROL) [Concomitant]

REACTIONS (2)
  - Liver disorder [None]
  - Malignant neoplasm progression [None]
